FAERS Safety Report 6795976-1 (Version None)
Quarter: 2010Q2

REPORT INFORMATION
  Report Type: 
  Country: None (occurrence: None)
  Receive Date: 20100625
  Receipt Date: 20100617
  Transmission Date: 20101027
  Serious: Yes (Other)
  Sender: FDA-Public Use
  Company Number: B0662474A

PATIENT
  Sex: Male

DRUGS (4)
  1. MALARONE [Suspect]
     Indication: MALARIA PROPHYLAXIS
     Dosage: 250MG PER DAY
     Route: 048
     Dates: start: 20100115, end: 20100215
  2. COMPETACT [Concomitant]
     Route: 065
     Dates: start: 20080319, end: 20100616
  3. FENOFIBRATE [Concomitant]
     Dosage: 145MG PER DAY
     Route: 048
     Dates: start: 20080319, end: 20100616
  4. REPAGLINIDE [Concomitant]
     Dosage: 2MG PER DAY
     Route: 048
     Dates: start: 20090501, end: 20100616

REACTIONS (2)
  - ANAEMIA [None]
  - LEUKOPENIA [None]
